FAERS Safety Report 15982929 (Version 2)
Quarter: 2023Q1

REPORT INFORMATION
  Report Type: Spontaneous
  Country: PL (occurrence: PL)
  Receive Date: 20190219
  Receipt Date: 20230329
  Transmission Date: 20230417
  Serious: Yes (Hospitalization)
  Sender: FDA-Public Use
  Company Number: PHHY2019PL033339

PATIENT
  Age: 76 Year
  Sex: Female

DRUGS (3)
  1. DOXORUBICIN HYDROCHLORIDE [Suspect]
     Active Substance: DOXORUBICIN HYDROCHLORIDE
     Indication: Breast cancer
     Dosage: 50 MG/M2, 6 CYCLES
     Route: 065
     Dates: start: 201503, end: 201508
  2. DOCETAXEL [Suspect]
     Active Substance: DOCETAXEL
     Indication: Breast cancer
     Dosage: 75 MG/M2, 6 CYCLES
     Route: 065
     Dates: start: 201503, end: 201508
  3. FILGRASTIM [Concomitant]
     Active Substance: FILGRASTIM
     Indication: Prophylaxis
     Dosage: UNK
     Route: 065
     Dates: start: 2015

REACTIONS (6)
  - Haemorrhagic diathesis [Unknown]
  - Anaemia [Unknown]
  - Thrombocytopenia [Unknown]
  - Vomiting [Not Recovered/Not Resolved]
  - Febrile neutropenia [Unknown]
  - Nausea [Not Recovered/Not Resolved]
